FAERS Safety Report 8356570-4 (Version None)
Quarter: 2012Q2

REPORT INFORMATION
  Report Type: 
  Country: None (occurrence: None)
  Receive Date: 20120514
  Receipt Date: 20120507
  Transmission Date: 20120825
  Serious: Yes (Hospitalization)
  Sender: FDA-Public Use
  Company Number: PHHY2012FR031327

PATIENT
  Sex: Female

DRUGS (3)
  1. GILENYA [Suspect]
     Dosage: 0.5 MG, DAILY
     Route: 048
     Dates: start: 20120405, end: 20120405
  2. TEGRETOL [Suspect]
     Indication: TRIGEMINAL NEURALGIA
     Dosage: UNK UKN, UNK
     Dates: end: 20120405
  3. TEGRETOL [Suspect]
     Dosage: UNK UKN, UNK

REACTIONS (4)
  - BRADYCARDIA [None]
  - ATRIOVENTRICULAR BLOCK [None]
  - HYPOTENSION [None]
  - ELECTROCARDIOGRAM PR PROLONGATION [None]
